FAERS Safety Report 13657643 (Version 1)
Quarter: 2017Q2

REPORT INFORMATION
  Report Type: Spontaneous
  Country: US (occurrence: US)
  Receive Date: 20170615
  Receipt Date: 20170615
  Transmission Date: 20170830
  Serious: No
  Sender: FDA-Public Use
  Company Number: US-MEDA-2017060005

PATIENT
  Age: 66 Year
  Sex: Male
  Weight: 91 kg

DRUGS (1)
  1. MUSE [Suspect]
     Active Substance: ALPROSTADIL
     Indication: ERECTILE DYSFUNCTION
     Route: 066
     Dates: start: 2009, end: 20170602

REACTIONS (6)
  - Expired product administered [Recovered/Resolved]
  - Urethral haemorrhage [Recovered/Resolved]
  - Urethral injury [Recovered/Resolved]
  - Wrong technique in product usage process [Recovered/Resolved]
  - Application site discomfort [Recovered/Resolved]
  - Tremor [Not Recovered/Not Resolved]

NARRATIVE: CASE EVENT DATE: 20170602
